FAERS Safety Report 25859460 (Version 1)
Quarter: 2025Q3

REPORT INFORMATION
  Report Type: Spontaneous
  Country: EU (occurrence: EU)
  Receive Date: 20250929
  Receipt Date: 20250929
  Transmission Date: 20251021
  Serious: Yes (Other)
  Sender: ELI LILLY AND COMPANY
  Company Number: None

PATIENT
  Age: 23 Year
  Sex: Male

DRUGS (1)
  1. OLUMIANT [Suspect]
     Active Substance: BARICITINIB
     Indication: Dermatitis atopic
     Route: 065

REACTIONS (5)
  - Liver disorder [Recovering/Resolving]
  - Hepatitis acute [Recovering/Resolving]
  - Liver injury [Recovering/Resolving]
  - Hepatic enzyme abnormal [Recovering/Resolving]
  - Eosinophilia [Recovering/Resolving]
